FAERS Safety Report 5113666-8 (Version None)
Quarter: 2006Q3

REPORT INFORMATION
  Report Type: 
  Country: None (occurrence: None)
  Receive Date: 20060920
  Receipt Date: 20060908
  Transmission Date: 20061208
  Serious: No
  Sender: FDA-Public Use
  Company Number: 2006104775

PATIENT
  Age: 76 Year
  Sex: Male

DRUGS (2)
  1. ALDACTONE [Suspect]
     Indication: HYPERTENSION
     Dosage: 50 MG (50 MG, QD), ORAL
     Route: 048
     Dates: end: 20060101
  2. NORVASC [Concomitant]

REACTIONS (1)
  - BREAST MASS [None]
